FAERS Safety Report 19394959 (Version 2)
Quarter: 2021Q2

REPORT INFORMATION
  Report Type: Report from Study
  Country: FR (occurrence: FR)
  Receive Date: 20210609
  Receipt Date: 20210624
  Transmission Date: 20210717
  Serious: Yes (Hospitalization)
  Sender: FDA-Public Use
  Company Number: FR-BAYER-2021-153805

PATIENT
  Sex: Male
  Weight: 69.8 kg

DRUGS (26)
  1. REGORAFENIB. [Suspect]
     Active Substance: REGORAFENIB
     Indication: METASTASES TO LIVER
     Dosage: 120 MG
     Route: 048
     Dates: start: 20210407, end: 20210521
  2. AVELUMAB [Suspect]
     Active Substance: AVELUMAB
     Indication: METASTASES TO PERITONEUM
  3. TRAMADOL. [Concomitant]
     Active Substance: TRAMADOL
     Indication: CANCER PAIN
     Dosage: 1 DF, TID IF IN ANY PAIN FOR 1 MONTH
  4. UREA. [Concomitant]
     Active Substance: UREA
     Indication: PALMAR-PLANTAR ERYTHRODYSAESTHESIA SYNDROME
  5. OROZAMUDOL [Concomitant]
     Active Substance: TRAMADOL
     Indication: CANCER PAIN
  6. KETOPROFENO [Concomitant]
     Indication: CHILLS
     Dosage: 100 MG IF ANY PAIN, MAX 2 PER DAY
     Route: 048
     Dates: start: 20210604
  7. POLARAMINE [Concomitant]
     Active Substance: DEXCHLORPHENIRAMINE MALEATE
     Indication: PREMEDICATION
  8. PARACETAMOL [Concomitant]
     Active Substance: ACETAMINOPHEN
     Indication: CHILLS
     Dosage: UNK
     Dates: start: 20210602, end: 20210602
  9. REGORAFENIB. [Suspect]
     Active Substance: REGORAFENIB
     Indication: ADENOCARCINOMA OF COLON
     Dosage: 160 MG
     Dates: start: 202102
  10. DESLORATADINE. [Concomitant]
     Active Substance: DESLORATADINE
     Indication: RASH
  11. DESLORATADINE. [Concomitant]
     Active Substance: DESLORATADINE
     Indication: PALMAR-PLANTAR ERYTHRODYSAESTHESIA SYNDROME
  12. PREDNISONE. [Concomitant]
     Active Substance: PREDNISONE
     Indication: RASH
  13. POLARAMINE [Concomitant]
     Active Substance: DEXCHLORPHENIRAMINE MALEATE
     Indication: CHILLS
     Dosage: UNK
     Dates: start: 20210602, end: 20210602
  14. AVELUMAB [Suspect]
     Active Substance: AVELUMAB
     Indication: METASTASES TO LIVER
     Dosage: 700 MG
     Dates: start: 20210602, end: 20210602
  15. UREA. [Concomitant]
     Active Substance: UREA
     Indication: RASH
  16. REGORAFENIB. [Suspect]
     Active Substance: REGORAFENIB
     Indication: METASTASES TO PERITONEUM
  17. TRAMADOL. [Concomitant]
     Active Substance: TRAMADOL
     Indication: PAIN
     Dosage: MORNING AND EVENING
  18. KETOPROFENO [Concomitant]
     Indication: PREMEDICATION
  19. PARACETAMOL [Concomitant]
     Active Substance: ACETAMINOPHEN
     Indication: PREMEDICATION
  20. AVELUMAB [Suspect]
     Active Substance: AVELUMAB
     Indication: ADENOCARCINOMA OF COLON
     Dosage: 700 MG
     Route: 042
     Dates: start: 20210421, end: 20210518
  21. TRAMADOL. [Concomitant]
     Active Substance: TRAMADOL
     Indication: PAIN
     Dosage: UNK
     Route: 048
     Dates: start: 20210504
  22. TRAMADOL. [Concomitant]
     Active Substance: TRAMADOL
     Indication: PAIN
     Dosage: UNK
     Route: 048
     Dates: start: 20210604
  23. PREDNISONE. [Concomitant]
     Active Substance: PREDNISONE
     Indication: PALMAR-PLANTAR ERYTHRODYSAESTHESIA SYNDROME
  24. MYCOSTATINE [Concomitant]
     Active Substance: NYSTATIN
     Indication: PAIN
     Dosage: 1 PIPPETE 3 TIMES A DAY FOR 1 MONTH
     Route: 048
     Dates: start: 20210604
  25. KETOPROFENO [Concomitant]
     Indication: PAIN
     Dosage: UNK
     Dates: start: 20210602, end: 20210602
  26. MAG 2 [MAGNESIUM CARBONATE] [Concomitant]
     Active Substance: MAGNESIUM CARBONATE
     Indication: MUSCLE SPASMS
     Dosage: 2 DF, TID IF CRAMPS
     Dates: start: 20210604

REACTIONS (3)
  - Catheter site infection [Recovered/Resolved]
  - Hypotension [Recovered/Resolved]
  - Chills [Recovered/Resolved]

NARRATIVE: CASE EVENT DATE: 20210601
